FAERS Safety Report 9885823 (Version 1)
Quarter: 2014Q1

REPORT INFORMATION
  Report Type: Spontaneous
  Country: US (occurrence: None)
  Receive Date: 20140207
  Receipt Date: 20140207
  Transmission Date: 20141002
  Serious: Yes (Life-Threatening, Hospitalization)
  Sender: FDA-Public Use
  Company Number: None

PATIENT
  Age: 57 Year
  Sex: Female

DRUGS (1)
  1. MONTELUKAST 10 MG [Suspect]
     Indication: ASTHMA
     Dates: start: 200005

REACTIONS (5)
  - Nerve injury [None]
  - Abdominal pain [None]
  - Constipation [None]
  - Muscular weakness [None]
  - Porphyria [None]
